FAERS Safety Report 8188924-3 (Version None)
Quarter: 2012Q1

REPORT INFORMATION
  Report Type: 
  Country: None (occurrence: None)
  Receive Date: 20120306
  Receipt Date: 20120116
  Transmission Date: 20120608
  Serious: Yes (Death, Hospitalization, Other)
  Sender: FDA-Public Use
  Company Number: IT-TEVA-325811USA

PATIENT
  Sex: Male

DRUGS (3)
  1. RITUXIMAB [Concomitant]
     Dates: start: 20111212
  2. MITOXANTRONE [Concomitant]
     Dates: start: 20111212
  3. TREANDA [Suspect]
     Route: 042
     Dates: start: 20111213

REACTIONS (4)
  - RESPIRATORY FAILURE [None]
  - LUNG DISORDER [None]
  - HEPATITIS ACUTE [None]
  - PYREXIA [None]
